FAERS Safety Report 7658196-4 (Version None)
Quarter: 2011Q3

REPORT INFORMATION
  Report Type: 
  Country: None (occurrence: None)
  Receive Date: 20110805
  Receipt Date: 20110729
  Transmission Date: 20111222
  Serious: Yes (Hospitalization, Other)
  Sender: FDA-Public Use
  Company Number: JP-JNJFOC-20101100170

PATIENT
  Age: 50 Year
  Sex: Female

DRUGS (2)
  1. DOXORUBICIN HCL [Suspect]
     Indication: PRODUCT USED FOR UNKNOWN INDICATION
     Route: 042
     Dates: start: 20101001, end: 20101001
  2. DOXORUBICIN HCL [Suspect]
     Route: 042
     Dates: start: 20100901, end: 20100901

REACTIONS (1)
  - MYOCARDIAL INFARCTION [None]
